FAERS Safety Report 6907158-0 (Version None)
Quarter: 2010Q3

REPORT INFORMATION
  Report Type: 
  Country: None (occurrence: None)
  Receive Date: 20100804
  Receipt Date: 20091221
  Transmission Date: 20110219
  Serious: Yes (Hospitalization)
  Sender: FDA-Public Use
  Company Number: AU-PFIZER INC-2008059150

PATIENT
  Sex: Male
  Weight: 99 kg

DRUGS (14)
  1. MARAVIROC [Suspect]
     Indication: HIV INFECTION
     Dosage: 600 MG, 2X/DAY
     Route: 048
     Dates: start: 20080312
  2. RALTEGRAVIR [Concomitant]
     Indication: HIV INFECTION
     Route: 048
     Dates: start: 20080312
  3. ETRAVIRINE [Concomitant]
     Indication: HIV INFECTION
     Route: 048
     Dates: start: 20080312
  4. TENOFOVIR [Concomitant]
     Indication: HIV INFECTION
     Route: 048
     Dates: start: 20080312
  5. ABACAVIR SULFATE/LAMIVUDINE [Concomitant]
     Indication: HIV INFECTION
     Dosage: 600/300 MG
     Route: 048
     Dates: start: 20080312
  6. LYRICA [Concomitant]
     Route: 048
     Dates: start: 20060101
  7. SOMAC [Concomitant]
     Route: 048
     Dates: start: 20070101
  8. FLUCONAZOLE [Concomitant]
     Route: 048
     Dates: start: 20080331
  9. AZITHROMYCIN [Concomitant]
     Route: 048
     Dates: start: 20070101
  10. PRAZOSIN [Concomitant]
  11. VALPROATE SODIUM [Concomitant]
     Route: 048
     Dates: start: 20050101
  12. SOTALOL HCL [Concomitant]
     Route: 048
  13. VALACYCLOVIR [Concomitant]
     Route: 048
     Dates: start: 20000101
  14. ATACAND HCT [Concomitant]
     Dosage: UNK
     Dates: start: 20070101

REACTIONS (1)
  - POLYARTHRITIS [None]
